FAERS Safety Report 7500801-7 (Version None)
Quarter: 2011Q2

REPORT INFORMATION
  Report Type: 
  Country: None (occurrence: None)
  Receive Date: 20110524
  Receipt Date: 20110512
  Transmission Date: 20111010
  Serious: Yes (Hospitalization)
  Sender: FDA-Public Use
  Company Number: A0762217A

PATIENT
  Age: 71 Year
  Sex: Male
  Weight: 84.5 kg

DRUGS (9)
  1. ZESTRIL [Concomitant]
  2. PLETAL [Concomitant]
  3. GLUCOTROL [Concomitant]
  4. AVANDIA [Suspect]
     Dosage: 4MG PER DAY
     Route: 048
     Dates: start: 20050101, end: 20061219
  5. SOMA [Concomitant]
  6. LISINOPRIL [Concomitant]
  7. CARDIZEM [Concomitant]
  8. TRENTAL [Concomitant]
  9. HYDROCHLOROTHIAZIDE [Concomitant]

REACTIONS (5)
  - CARDIAC FAILURE CONGESTIVE [None]
  - RENAL FAILURE [None]
  - MYOCARDIAL INFARCTION [None]
  - CORONARY ARTERY DISEASE [None]
  - VISUAL IMPAIRMENT [None]
